FAERS Safety Report 8840857 (Version 37)
Quarter: 2016Q4

REPORT INFORMATION
  Report Type: Report from Study
  Country: CA (occurrence: CA)
  Receive Date: 20121015
  Receipt Date: 20161206
  Transmission Date: 20170207
  Serious: Yes (Hospitalization, Other)
  Sender: FDA-Public Use
  Company Number: CA-ROCHE-1141849

PATIENT
  Age: 51 Year
  Sex: Female
  Weight: 62.8 kg

DRUGS (19)
  1. ACTEMRA [Suspect]
     Active Substance: TOCILIZUMAB
     Route: 042
     Dates: start: 20160712
  2. ACTEMRA [Suspect]
     Active Substance: TOCILIZUMAB
     Route: 042
     Dates: start: 20160815
  3. ACTEMRA [Suspect]
     Active Substance: TOCILIZUMAB
     Route: 042
     Dates: start: 20160909
  4. ACTEMRA [Suspect]
     Active Substance: TOCILIZUMAB
     Route: 042
     Dates: start: 20161006
  5. ACTEMRA [Suspect]
     Active Substance: TOCILIZUMAB
     Route: 042
     Dates: start: 20140707
  6. ELTROXIN [Concomitant]
     Active Substance: LEVOTHYROXINE
     Route: 065
  7. FOLIC ACID. [Concomitant]
     Active Substance: FOLIC ACID
     Route: 065
  8. METHOTREXATE. [Concomitant]
     Active Substance: METHOTREXATE
     Route: 048
  9. FERROUS GLUCONATE [Concomitant]
     Active Substance: FERROUS GLUCONATE
  10. ACTEMRA [Suspect]
     Active Substance: TOCILIZUMAB
     Route: 042
     Dates: start: 20150811
  11. ACTEMRA [Suspect]
     Active Substance: TOCILIZUMAB
     Indication: RHEUMATOID ARTHRITIS
     Dosage: DATE OF LAST DOSE PRIOR TO AE:26/OCT/2012.
     Route: 042
     Dates: start: 20110606
  12. ACTEMRA [Suspect]
     Active Substance: TOCILIZUMAB
     Dosage: LAST INFUSION: 24/MAY/2016
     Route: 042
     Dates: start: 20160125
  13. ZOCOR [Concomitant]
     Active Substance: SIMVASTATIN
     Route: 065
  14. CELEBREX [Concomitant]
     Active Substance: CELECOXIB
     Route: 065
  15. ACTONEL [Concomitant]
     Active Substance: RISEDRONATE SODIUM
  16. PANTOPRAZOLE [Concomitant]
     Active Substance: PANTOPRAZOLE SODIUM
     Route: 065
  17. TYLENOL [Suspect]
     Active Substance: ACETAMINOPHEN
     Indication: HEADACHE
     Route: 065
  18. TRAMADOL. [Concomitant]
     Active Substance: TRAMADOL
     Route: 065
  19. TYLENOL EXTRA STRENGTH [Concomitant]
     Active Substance: ACETAMINOPHEN
     Route: 065

REACTIONS (34)
  - Injection site extravasation [Unknown]
  - Blood pressure systolic increased [Unknown]
  - Malaise [Unknown]
  - Asthma [Unknown]
  - Rotator cuff syndrome [Unknown]
  - Body temperature increased [Unknown]
  - Infusion site extravasation [Unknown]
  - Neutrophil count increased [Unknown]
  - Respiratory tract infection [Recovered/Resolved]
  - Seasonal allergy [Unknown]
  - Hepatic enzyme increased [Not Recovered/Not Resolved]
  - Fall [Unknown]
  - Hip surgery [Recovered/Resolved]
  - Wrist fracture [Unknown]
  - Arthritis [Unknown]
  - Upper respiratory tract congestion [Unknown]
  - Weight increased [Unknown]
  - Procedural pain [Not Recovered/Not Resolved]
  - Cellulitis [Recovered/Resolved]
  - Infusion related reaction [Unknown]
  - Blood pressure increased [Unknown]
  - Lower respiratory tract congestion [Unknown]
  - Blood pressure fluctuation [Unknown]
  - Infection [Unknown]
  - Gastric infection [Not Recovered/Not Resolved]
  - Blood pressure increased [Unknown]
  - Headache [Not Recovered/Not Resolved]
  - Drug ineffective [Unknown]
  - Arthralgia [Not Recovered/Not Resolved]
  - Joint swelling [Not Recovered/Not Resolved]
  - Injection site pain [Unknown]
  - Arthralgia [Unknown]
  - Peripheral swelling [Not Recovered/Not Resolved]
  - White blood cell count increased [Unknown]

NARRATIVE: CASE EVENT DATE: 20120710
